FAERS Safety Report 8903539 (Version 1)
Quarter: 2012Q4

REPORT INFORMATION
  Report Type: 
  Country: US (occurrence: US)
  Receive Date: 20121113
  Receipt Date: 20121113
  Transmission Date: 20130627
  Serious: No
  Sender: FDA-Public Use
  Company Number: US-PFIZER INC-2012282002

PATIENT
  Age: 61 Year
  Sex: Female

DRUGS (6)
  1. DILTIAZEM [Suspect]
     Dosage: UNK
  2. LISINOPRIL [Suspect]
     Dosage: UNK
  3. LOSARTAN POTASSIUM [Suspect]
     Dosage: UNK
  4. OXYCODONE HYDROCHLORIDE [Suspect]
     Dosage: UNK
  5. IODINE [Suspect]
     Dosage: UNK
  6. GADOPENTETATE DIMEGLUMINE [Suspect]
     Dosage: UNK

REACTIONS (1)
  - Drug hypersensitivity [Unknown]
